FAERS Safety Report 8904372 (Version 4)
Quarter: 2014Q3

REPORT INFORMATION
  Report Type: Spontaneous
  Country: US (occurrence: US)
  Receive Date: 20121112
  Receipt Date: 20140728
  Transmission Date: 20150326
  Serious: Yes (Disabling)
  Sender: FDA-Public Use
  Company Number: US-009507513-1211USA003817

PATIENT
  Sex: Male

DRUGS (4)
  1. ZOCOR [Suspect]
     Active Substance: SIMVASTATIN
     Dosage: UNK
     Route: 048
     Dates: end: 20110128
  2. PROPECIA [Suspect]
     Active Substance: FINASTERIDE
     Indication: ANDROGENETIC ALOPECIA
     Dosage: 1 MG, QD
     Route: 048
     Dates: start: 19990513, end: 200001
  3. LIPITOR [Concomitant]
     Active Substance: ATORVASTATIN CALCIUM
     Indication: BLOOD CHOLESTEROL
     Dosage: UNK
     Route: 048
     Dates: start: 1997
  4. ALLOPURINOL. [Concomitant]
     Active Substance: ALLOPURINOL
     Indication: GOUT
     Dosage: UNK
     Route: 048
     Dates: start: 1997

REACTIONS (18)
  - Gout [Unknown]
  - Diverticulitis [Unknown]
  - Prostatic specific antigen increased [Unknown]
  - Large intestine polyp [Unknown]
  - Pain [Unknown]
  - Cognitive disorder [Not Recovered/Not Resolved]
  - Benign prostatic hyperplasia [Unknown]
  - Vision blurred [Unknown]
  - Loss of libido [Not Recovered/Not Resolved]
  - Abdominal pain lower [Unknown]
  - Semen volume decreased [Not Recovered/Not Resolved]
  - Orgasm abnormal [Not Recovered/Not Resolved]
  - Vitamin D deficiency [Unknown]
  - Hernia [Unknown]
  - Liver function test abnormal [Unknown]
  - Back pain [Recovered/Resolved]
  - Pollakiuria [Unknown]
  - Erectile dysfunction [Not Recovered/Not Resolved]

NARRATIVE: CASE EVENT DATE: 199906
